FAERS Safety Report 5427651-X (Version None)
Quarter: 2007Q3

REPORT INFORMATION
  Report Type: 
  Country: None (occurrence: None)
  Receive Date: 20070823
  Receipt Date: 20070806
  Transmission Date: 20080115
  Serious: Yes (Hospitalization)
  Sender: FDA-Public Use
  Company Number: 20070208

PATIENT
  Age: 90 Year
  Sex: Female

DRUGS (1)
  1. VENOFER [Suspect]
     Indication: BLOOD ERYTHROPOIETIN DECREASED
     Dosage: 200 MG X 1, INTRAVENOUS DRIP
     Route: 041

REACTIONS (2)
  - DIARRHOEA [None]
  - PERITONITIS [None]
